FAERS Safety Report 8229894-9 (Version None)
Quarter: 2012Q1

REPORT INFORMATION
  Report Type: 
  Country: None (occurrence: None)
  Receive Date: 20120323
  Receipt Date: 20120315
  Transmission Date: 20120608
  Serious: Yes (Hospitalization, Other)
  Sender: FDA-Public Use
  Company Number: US-BIOGENIDEC-2011BI025071

PATIENT
  Age: 65 Year
  Sex: Female

DRUGS (4)
  1. AVONEX [Suspect]
     Indication: MULTIPLE SCLEROSIS
     Route: 030
     Dates: start: 20110329, end: 20111028
  2. AVONEX [Suspect]
     Route: 030
  3. AVONEX [Suspect]
     Route: 030
     Dates: start: 20110329, end: 20111028
  4. AVONEX [Suspect]
     Route: 030
     Dates: start: 20110329, end: 20111028

REACTIONS (6)
  - ARTHRALGIA [None]
  - RENAL CANCER [None]
  - ENDOMETRIAL CANCER [None]
  - MUSCULOSKELETAL STIFFNESS [None]
  - TRIGEMINAL NEURALGIA [None]
  - INFLUENZA LIKE ILLNESS [None]
